FAERS Safety Report 13580038 (Version 1)
Quarter: 2017Q2

REPORT INFORMATION
  Report Type: Spontaneous
  Country: AU (occurrence: AU)
  Receive Date: 20170525
  Receipt Date: 20170525
  Transmission Date: 20170830
  Serious: Yes (Other)
  Sender: FDA-Public Use
  Company Number: AU-ROCHE-1938951

PATIENT
  Age: 71 Year
  Sex: Female
  Weight: 66.7 kg

DRUGS (5)
  1. HYDROCORTISONE. [Suspect]
     Active Substance: HYDROCORTISONE
     Indication: PRODUCT USED FOR UNKNOWN INDICATION
     Route: 065
  2. PERTUZUMAB [Suspect]
     Active Substance: PERTUZUMAB
     Indication: PRODUCT USED FOR UNKNOWN INDICATION
     Route: 065
  3. HERCEPTIN [Suspect]
     Active Substance: TRASTUZUMAB
     Indication: PRODUCT USED FOR UNKNOWN INDICATION
     Route: 065
     Dates: start: 20161208
  4. NORMAL SALINE [Concomitant]
     Active Substance: SODIUM CHLORIDE
  5. LORATADINE. [Concomitant]
     Active Substance: LORATADINE

REACTIONS (4)
  - Feeling cold [Recovered/Resolved]
  - Chills [Recovered/Resolved]
  - Emotional disorder [Unknown]
  - Pyrexia [Recovered/Resolved]

NARRATIVE: CASE EVENT DATE: 20161208
